FAERS Safety Report 16693580 (Version 1)
Quarter: 2019Q3

REPORT INFORMATION
  Report Type: Report from Study
  Country: IT (occurrence: IT)
  Receive Date: 20190812
  Receipt Date: 20190812
  Transmission Date: 20191004
  Serious: Yes (Other)
  Sender: FDA-Public Use
  Company Number: IT-PURDUE-GBR-2019-0068819

PATIENT
  Age: 13 Year
  Sex: Male

DRUGS (3)
  1. FENTANEST [Suspect]
     Active Substance: FENTANYL CITRATE
     Indication: ANALGESIC THERAPY
     Dosage: 2 MCG/KG, UNK
     Route: 065
  2. NON-PMN MORPHINE SULFATE [Suspect]
     Active Substance: MORPHINE SULFATE
     Indication: ANALGESIC THERAPY
     Route: 037
  3. KETAMINE [Suspect]
     Active Substance: KETAMINE
     Indication: ANALGESIC THERAPY
     Dosage: AVERAGE DOSE 0.1 MG/KG
     Route: 065

REACTIONS (2)
  - Sedation complication [Unknown]
  - Respiratory depression [Unknown]
